FAERS Safety Report 24011725 (Version 2)
Quarter: 2024Q3

REPORT INFORMATION
  Report Type: Spontaneous
  Country: US (occurrence: US)
  Receive Date: 20240625
  Receipt Date: 20240712
  Transmission Date: 20241017
  Serious: No
  Sender: CALLIDITAS THERAPEUTICS
  Company Number: US-Calliditas-2024CAL01124

PATIENT
  Age: 70 Year
  Sex: Female
  Weight: 69.3 kg

DRUGS (1)
  1. TARPEYO [Suspect]
     Active Substance: BUDESONIDE
     Indication: IgA nephropathy
     Route: 048
     Dates: start: 20240603, end: 20240628

REACTIONS (4)
  - Hypertension [Unknown]
  - Pain in extremity [Unknown]
  - Hypoaesthesia [Unknown]
  - Constipation [Unknown]
